FAERS Safety Report 18580331 (Version 1)
Quarter: 2020Q4

REPORT INFORMATION
  Report Type: Report from Study
  Country: FR (occurrence: FR)
  Receive Date: 20201204
  Receipt Date: 20201204
  Transmission Date: 20210114
  Serious: Yes (Other)
  Sender: FDA-Public Use
  Company Number: FR-EMD SERONO-9131306

PATIENT
  Sex: Female

DRUGS (2)
  1. OVITRELLE [Suspect]
     Active Substance: CHORIOGONADOTROPIN ALFA
     Indication: CONTROLLED OVARIAN STIMULATION
  2. GONAL-F [Suspect]
     Active Substance: FOLLITROPIN
     Indication: ASSISTED REPRODUCTIVE TECHNOLOGY

REACTIONS (15)
  - Adnexa uteri pain [Unknown]
  - Breast swelling [Unknown]
  - Gastroenteritis [Unknown]
  - Dysstasia [Unknown]
  - Breast discomfort [Unknown]
  - Menstrual discomfort [Unknown]
  - Abortion spontaneous [Unknown]
  - Nausea [Unknown]
  - Dyspnoea [Unknown]
  - Flatulence [Unknown]
  - Gastric pH decreased [Unknown]
  - Salivary hypersecretion [Unknown]
  - Parosmia [Unknown]
  - Somnolence [Unknown]
  - Dizziness postural [Unknown]
